FAERS Safety Report 4622740-1 (Version None)
Quarter: 2005Q1

REPORT INFORMATION
  Report Type: 
  Country: None (occurrence: None)
  Receive Date: 20050328
  Receipt Date: 20050328
  Transmission Date: 20050727
  Serious: No
  Sender: FDA-Public Use
  Company Number: None

PATIENT
  Age: 47 Year
  Sex: Male
  Weight: 82.5547 kg

DRUGS (5)
  1. CLAFORAN [Suspect]
     Indication: LYME DISEASE
     Dosage: 2GRAMS  Q 8 HOURS   INTRAVENOU
     Route: 042
     Dates: start: 20050216, end: 20050314
  2. NYSTATIN [Concomitant]
  3. MOTRIN [Concomitant]
  4. NACL [Concomitant]
  5. HEPARIN [Concomitant]

REACTIONS (3)
  - BLOOD BILIRUBIN INCREASED [None]
  - EOSINOPHIL COUNT INCREASED [None]
  - LIVER FUNCTION TEST ABNORMAL [None]
